FAERS Safety Report 7327860-9 (Version None)
Quarter: 2011Q1

REPORT INFORMATION
  Report Type: 
  Country: None (occurrence: None)
  Receive Date: 20110303
  Receipt Date: 20110225
  Transmission Date: 20110831
  Serious: Yes (Hospitalization, Other)
  Sender: FDA-Public Use
  Company Number: US-PFIZER INC-2008012940

PATIENT
  Sex: Female

DRUGS (13)
  1. LYRICA [Suspect]
     Indication: DIABETIC NEUROPATHY
     Dosage: 150 MG, 2X/DAY
     Dates: start: 20060201
  2. LOPID [Concomitant]
     Indication: HYPERLIPIDAEMIA
     Dosage: 600 MG, 2X/DAY
  3. PROTONIX [Concomitant]
     Indication: GASTROOESOPHAGEAL REFLUX DISEASE
     Dosage: 40 MG, 1X/DAY
  4. COZAAR [Concomitant]
     Indication: HYPERTENSION
     Dosage: 50 MG, 1X/DAY
  5. ZOCOR [Concomitant]
     Indication: HYPERLIPIDAEMIA
     Dosage: 10 MG, 1X/DAY
  6. IMDUR [Concomitant]
     Indication: HYPERTENSION
     Dosage: 60 MG, 2X/DAY
  7. NOVOLOG [Concomitant]
     Indication: DIABETES MELLITUS
     Dosage: UNK
  8. TENORMIN [Concomitant]
     Indication: HYPERTENSION
     Dosage: 25 MG, 2X/DAY
  9. CYMBALTA [Concomitant]
     Indication: DIABETIC NEUROPATHY
     Dosage: 60 MG, 1X/DAY
     Dates: start: 20060201
  10. SYNTHROID [Concomitant]
     Indication: HYPOTHYROIDISM
     Dosage: 125 UG, 1X/DAY
  11. DIFLUCAN [Concomitant]
     Indication: INFECTION PROPHYLAXIS
     Dosage: 400 MG, 1X/DAY
  12. ASPIRIN [Concomitant]
     Indication: EMBOLISM ARTERIAL
     Dosage: 325 MG, 1X/DAY
  13. LANTUS [Concomitant]
     Indication: DIABETES MELLITUS
     Dosage: UNK

REACTIONS (1)
  - STEVENS-JOHNSON SYNDROME [None]
